FAERS Safety Report 13861603 (Version 1)
Quarter: 2017Q3

REPORT INFORMATION
  Report Type: Report from Study
  Country: US (occurrence: BR)
  Receive Date: 20170811
  Receipt Date: 20170811
  Transmission Date: 20171127
  Serious: Yes (Life-Threatening, Other)
  Sender: FDA-Public Use
  Company Number: US-SUNOVION-2017SUN003518

PATIENT
  Sex: Female
  Weight: 141 kg

DRUGS (1)
  1. INDACATEROL AND GLYCOPYRROLATE [Suspect]
     Active Substance: GLYCOPYRROLATE\INDACATEROL MALEATE
     Indication: RESPIRATORY DISORDER
     Dosage: 1 DF (110/50 UG), QD
     Route: 055

REACTIONS (14)
  - Body height decreased [Unknown]
  - Nervousness [Unknown]
  - Off label use [Unknown]
  - Feeling abnormal [Unknown]
  - Weight increased [Unknown]
  - Hypersensitivity [Unknown]
  - Feeling of despair [Unknown]
  - Dyspnoea [Unknown]
  - Drug ineffective [Unknown]
  - Nervous system disorder [Unknown]
  - Respiratory tract congestion [Unknown]
  - Product use in unapproved indication [Unknown]
  - Sputum discoloured [Unknown]
  - Cough [Unknown]
